FAERS Safety Report 22534424 (Version 1)
Quarter: 2023Q2

REPORT INFORMATION
  Report Type: Spontaneous
  Country: CN (occurrence: CN)
  Receive Date: 20230608
  Receipt Date: 20230608
  Transmission Date: 20230722
  Serious: Yes (Other)
  Sender: FDA-Public Use
  Company Number: None

PATIENT
  Age: 55 Year
  Sex: Female
  Weight: 53 kg

DRUGS (2)
  1. CYCLOPHOSPHAMIDE [Suspect]
     Active Substance: CYCLOPHOSPHAMIDE
     Indication: Neoplasm malignant
     Dosage: 800 MG, QD, DILUTED WITH 30 ML OF 0.9% SODIUM CHLORIDE, AT 23:59
     Route: 041
     Dates: start: 20230508, end: 20230508
  2. SODIUM CHLORIDE [Suspect]
     Active Substance: SODIUM CHLORIDE
     Indication: Medication dilution
     Dosage: 0.9%, 30 ML, QD, USED TO DILUTE 800 MG CYCLOPHOSPHAMIDE, AT 23:59
     Route: 041
     Dates: start: 20230508, end: 20230508

REACTIONS (2)
  - Myelosuppression [Recovering/Resolving]
  - Stomatitis [Recovering/Resolving]

NARRATIVE: CASE EVENT DATE: 20230522
